FAERS Safety Report 8240990-2 (Version None)
Quarter: 2012Q1

REPORT INFORMATION
  Report Type: 
  Country: None (occurrence: None)
  Receive Date: 20120328
  Receipt Date: 20120314
  Transmission Date: 20120608
  Serious: Yes (Other)
  Sender: FDA-Public Use
  Company Number: US-MYLANLABS-2012S1006122

PATIENT
  Age: 33 Year
  Sex: Male

DRUGS (2)
  1. AMBIEN CR [Suspect]
     Indication: INSOMNIA
     Dosage: TOOK ONE 12.5MG AMBIEN CR ON NIGHT OF SLEEP DRIVING INCIDENT
     Route: 048
  2. ZOLPIDEM [Suspect]
     Indication: INSOMNIA
     Dosage: 10MG
     Route: 065

REACTIONS (4)
  - SOMNAMBULISM [None]
  - AMNESIA [None]
  - SLEEP-RELATED EATING DISORDER [None]
  - ROAD TRAFFIC ACCIDENT [None]
